FAERS Safety Report 8580909-8 (Version None)
Quarter: 2012Q3

REPORT INFORMATION
  Report Type: 
  Country: None (occurrence: None)
  Receive Date: 20120809
  Receipt Date: 20120802
  Transmission Date: 20120928
  Serious: Yes (Life-Threatening, Hospitalization, Other)
  Sender: FDA-Public Use
  Company Number: BE-GENZYME-CLOF-1002220

PATIENT
  Sex: Male
  Weight: 81 kg

DRUGS (2)
  1. CLOFARABINE [Suspect]
     Indication: ACUTE LYMPHOCYTIC LEUKAEMIA
     Dosage: 60 MG, QD
     Route: 042
     Dates: start: 20120711, end: 20120714
  2. PREDNISOLONE [Suspect]
     Indication: ACUTE LYMPHOCYTIC LEUKAEMIA
     Dosage: 120 MG, QD
     Route: 048
     Dates: start: 20120711

REACTIONS (3)
  - SPLENIC RUPTURE [None]
  - SHOCK HAEMORRHAGIC [None]
  - SPLENIC LESION [None]
